FAERS Safety Report 20954871 (Version 2)
Quarter: 2022Q2

REPORT INFORMATION
  Report Type: Spontaneous
  Country: US (occurrence: None)
  Receive Date: 20220614
  Receipt Date: 20220614
  Transmission Date: 20220720
  Serious: No
  Sender: FDA-Public Use
  Company Number: US-MDD US Operations-MDD202109-001878

PATIENT
  Age: 68 Year
  Sex: Female

DRUGS (1)
  1. APOKYN [Suspect]
     Active Substance: APOMORPHINE HYDROCHLORIDE
     Indication: Parkinson^s disease
     Dosage: 10MG/ML 3ML CARTRIDGE 1 EA CART, UPTO 0.3 ML PER DOSE
     Route: 058

REACTIONS (1)
  - Illness [Not Recovered/Not Resolved]
